FAERS Safety Report 6862781-7 (Version None)
Quarter: 2010Q3

REPORT INFORMATION
  Report Type: 
  Country: None (occurrence: None)
  Receive Date: 20100721
  Receipt Date: 20100716
  Transmission Date: 20110219
  Serious: Yes (Other)
  Sender: FDA-Public Use
  Company Number: TN-ROCHE-716097

PATIENT
  Sex: Male
  Weight: 69 kg

DRUGS (2)
  1. PEGASYS [Suspect]
     Route: 058
     Dates: start: 20081201, end: 20090105
  2. COPEGUS [Suspect]
     Dosage: FREQUENCY; DAILY
     Route: 048
     Dates: start: 20080101, end: 20090105

REACTIONS (2)
  - ANAEMIA [None]
  - RENAL FAILURE [None]
